FAERS Safety Report 25956194 (Version 1)
Quarter: 2025Q4

REPORT INFORMATION
  Report Type: Spontaneous
  Country: US (occurrence: US)
  Receive Date: 20251024
  Receipt Date: 20251024
  Transmission Date: 20260118
  Serious: Yes (Other)
  Sender: MYLAN
  Company Number: US-MYLANLABS-2025M1089959

PATIENT
  Age: 13 Year
  Sex: Female

DRUGS (8)
  1. IMATINIB [Suspect]
     Active Substance: IMATINIB
     Indication: Gastrointestinal stromal tumour
     Dosage: UNK
  2. IMATINIB [Suspect]
     Active Substance: IMATINIB
     Dosage: UNK
     Route: 065
  3. IMATINIB [Suspect]
     Active Substance: IMATINIB
     Dosage: UNK
     Route: 065
  4. IMATINIB [Suspect]
     Active Substance: IMATINIB
     Dosage: UNK
  5. SUNITINIB [Suspect]
     Active Substance: SUNITINIB
     Indication: Gastrointestinal stromal tumour
     Dosage: UNK, CYCLE, 4 CYCLE
  6. SUNITINIB [Suspect]
     Active Substance: SUNITINIB
     Dosage: UNK, CYCLE, 4 CYCLE
     Route: 065
  7. SUNITINIB [Suspect]
     Active Substance: SUNITINIB
     Dosage: UNK, CYCLE, 4 CYCLE
     Route: 065
  8. SUNITINIB [Suspect]
     Active Substance: SUNITINIB
     Dosage: UNK, CYCLE, 4 CYCLE

REACTIONS (2)
  - Drug ineffective [Unknown]
  - Therapeutic response unexpected [Unknown]
